FAERS Safety Report 9431470 (Version 2)
Quarter: 2013Q4

REPORT INFORMATION
  Report Type: Spontaneous
  Country: US (occurrence: US)
  Receive Date: 20130730
  Receipt Date: 20131003
  Transmission Date: 20140711
  Serious: Yes (Hospitalization, Other)
  Sender: FDA-Public Use
  Company Number: US-FRI-1000046980

PATIENT
  Age: 0 Day
  Sex: Male

DRUGS (4)
  1. LEXAPRO [Suspect]
  2. PRILOSEC [Concomitant]
     Indication: GASTROOESOPHAGEAL REFLUX DISEASE
     Route: 064
  3. MACROBID [Concomitant]
     Route: 064
  4. TYLENOL [Concomitant]
     Route: 064

REACTIONS (11)
  - Spina bifida [Not Recovered/Not Resolved]
  - Bradycardia [Recovered/Resolved]
  - Metabolic acidosis [Recovered/Resolved]
  - Anaemia neonatal [Unknown]
  - Neurogenic bladder [Unknown]
  - Urinary tract infection [Unknown]
  - Croup infectious [Unknown]
  - Laryngomalacia [Recovered/Resolved]
  - Talipes [Unknown]
  - Bronchiolitis [Recovering/Resolving]
  - Nasopharyngitis [Unknown]
